FAERS Safety Report 5442345-2 (Version None)
Quarter: 2007Q3

REPORT INFORMATION
  Report Type: 
  Country: None (occurrence: None)
  Receive Date: 20070904
  Receipt Date: 20070824
  Transmission Date: 20080115
  Serious: Yes (Death)
  Sender: FDA-Public Use
  Company Number: GB-GENENTECH-245602

PATIENT
  Sex: Male

DRUGS (4)
  1. RITUXIMAB [Suspect]
     Indication: DIFFUSE LARGE B-CELL LYMPHOMA
     Dosage: UNK, UNK
     Dates: start: 20070701
  2. DEXAMETHASONE 0.5MG TAB [Suspect]
     Indication: B-CELL LYMPHOMA
     Dates: start: 20070701
  3. CYTARABINE [Suspect]
     Indication: B-CELL LYMPHOMA
     Dates: start: 20070701
  4. PLATINOL [Suspect]
     Indication: B-CELL LYMPHOMA
     Dates: start: 20070701

REACTIONS (1)
  - PNEUMONIA [None]
